FAERS Safety Report 17706730 (Version 1)
Quarter: 2020Q2

REPORT INFORMATION
  Report Type: Spontaneous
  Country: ES (occurrence: ES)
  Receive Date: 20200424
  Receipt Date: 20200424
  Transmission Date: 20200714
  Serious: Yes (Hospitalization)
  Sender: FDA-Public Use
  Company Number: ES-009507513-2004ESP006380

PATIENT
  Age: 51 Year
  Sex: Female

DRUGS (2)
  1. CYCLOSPORINE. [Suspect]
     Active Substance: CYCLOSPORINE
     Dosage: 3 MG/KG/DAY
     Route: 048
     Dates: start: 20190625, end: 20190701
  2. POSACONAZOLE [Suspect]
     Active Substance: POSACONAZOLE
     Dosage: 100 MG DAY
     Route: 048
     Dates: start: 20190701, end: 20190714

REACTIONS (2)
  - Thrombotic microangiopathy [Recovered/Resolved]
  - Cholestasis [Recovered/Resolved]

NARRATIVE: CASE EVENT DATE: 20190701
